FAERS Safety Report 23189265 (Version 2)
Quarter: 2023Q4

REPORT INFORMATION
  Report Type: Spontaneous
  Country: US (occurrence: US)
  Receive Date: 20231115
  Receipt Date: 20231226
  Transmission Date: 20240110
  Serious: No
  Sender: FDA-Public Use
  Company Number: US-SA-SAC20231108000353

PATIENT
  Age: 5 Year
  Sex: Female
  Weight: 14.96 kg

DRUGS (15)
  1. DUPIXENT [Suspect]
     Active Substance: DUPILUMAB
     Indication: Dermatitis atopic
     Dosage: 300 MG, Q4W FOR 3 DOSES
     Route: 058
  2. DUPIXENT [Suspect]
     Active Substance: DUPILUMAB
     Indication: Illness
  3. REMODULIN [Suspect]
     Active Substance: TREPROSTINIL
     Dosage: UNK
  4. CEFDINIR [Concomitant]
     Active Substance: CEFDINIR
  5. VITAMINS NOS [Concomitant]
     Active Substance: VITAMINS
  6. LETAIRIS [Concomitant]
     Active Substance: AMBRISENTAN
  7. SUCRALFATE [Concomitant]
     Active Substance: SUCRALFATE
  8. TADALAFIL [Concomitant]
     Active Substance: TADALAFIL
  9. NEXIUM I.V. [Concomitant]
     Active Substance: ESOMEPRAZOLE SODIUM
  10. DIPHENHYDRAMINE HYDROCHLORIDE [Concomitant]
     Active Substance: DIPHENHYDRAMINE HYDROCHLORIDE
  11. ACETAMINOPHEN [Concomitant]
     Active Substance: ACETAMINOPHEN
  12. MELATONIN [Concomitant]
     Active Substance: MELATONIN
  13. ZYRTEC [Concomitant]
     Active Substance: CETIRIZINE HYDROCHLORIDE
  14. VITAMINS [Concomitant]
     Active Substance: VITAMINS
  15. DIPHENHYDRAMINE HYDROCHLORIDE [Concomitant]
     Active Substance: DIPHENHYDRAMINE HYDROCHLORIDE

REACTIONS (9)
  - Ear infection [Unknown]
  - Accident [Unknown]
  - Incorrect dose administered [Unknown]
  - Abdominal pain upper [Unknown]
  - Nausea [Unknown]
  - Vomiting [Unknown]
  - Diarrhoea [Unknown]
  - Pain in jaw [Unknown]
  - Condition aggravated [Unknown]

NARRATIVE: CASE EVENT DATE: 20230101
